FAERS Safety Report 5384970-3 (Version None)
Quarter: 2007Q3

REPORT INFORMATION
  Report Type: 
  Country: None (occurrence: None)
  Receive Date: 20070709
  Receipt Date: 20070619
  Transmission Date: 20080115
  Serious: Yes (Hospitalization)
  Sender: FDA-Public Use
  Company Number: D-07-0048

PATIENT
  Sex: Male

DRUGS (11)
  1. JANTOVEN [Suspect]
     Indication: ANTICOAGULANT THERAPY
     Dosage: 10 MG, QD, PO
     Route: 048
     Dates: start: 20070616
  2. JANTOVEN [Suspect]
     Indication: ANTICOAGULANT THERAPY
     Dosage: 5 MG, QD, PO
     Route: 048
     Dates: start: 20070614, end: 20070615
  3. FLOMAX [Concomitant]
  4. METOPROLOL SUCCINATE [Concomitant]
  5. ATIVAN [Concomitant]
  6. AVAPRO [Concomitant]
  7. NOVOLIN 50/50 [Concomitant]
  8. REGULAR INSULIN [Concomitant]
  9. TYLENOL [Concomitant]
  10. ZOFRAN [Concomitant]
  11. ROCEPHIN [Concomitant]

REACTIONS (3)
  - BLOOD SODIUM DECREASED [None]
  - HYPERGLYCAEMIA [None]
  - INTERNATIONAL NORMALISED RATIO DECREASED [None]
